FAERS Safety Report 9126041 (Version 1)
Quarter: 2013Q1

REPORT INFORMATION
  Report Type: Spontaneous
  Country: US (occurrence: US)
  Receive Date: 20130121
  Receipt Date: 20130121
  Transmission Date: 20140127
  Serious: Yes (Hospitalization)
  Sender: FDA-Public Use
  Company Number: US-BAYER-2013-006063

PATIENT
  Age: 46 Year
  Sex: Female

DRUGS (5)
  1. YASMIN [Suspect]
  2. CODEINE [Concomitant]
  3. MEDROL [Concomitant]
  4. PRIMAXIN [Concomitant]
  5. TYLENOL [Concomitant]

REACTIONS (1)
  - Transverse sinus thrombosis [None]
